FAERS Safety Report 18841873 (Version 3)
Quarter: 2021Q1

REPORT INFORMATION
  Report Type: Spontaneous
  Country: US (occurrence: US)
  Receive Date: 20210203
  Receipt Date: 20210315
  Transmission Date: 20210419
  Serious: Yes (Other)
  Sender: FDA-Public Use
  Company Number: US-GLAXOSMITHKLINE-US2021GSK027697

PATIENT
  Sex: Male

DRUGS (4)
  1. ZANTAC [Suspect]
     Active Substance: RANITIDINE HYDROCHLORIDE
     Indication: RETCHING
     Dosage: 150 MG, QD
     Route: 065
     Dates: start: 199412, end: 200812
  2. RANITIDINE CAPSULE [Suspect]
     Active Substance: RANITIDINE
     Indication: RETCHING
     Dosage: 150 MG, QD
     Route: 065
     Dates: start: 199412, end: 200812
  3. ZANTAC [Suspect]
     Active Substance: RANITIDINE HYDROCHLORIDE
     Indication: RETCHING
     Dosage: 150 MG, QD
     Route: 065
     Dates: start: 199412, end: 200812
  4. ZANTAC [Suspect]
     Active Substance: RANITIDINE HYDROCHLORIDE
     Indication: RETCHING
     Dosage: 150 MG, QD
     Route: 065
     Dates: start: 199412, end: 200812

REACTIONS (1)
  - Renal cancer [Unknown]
